FAERS Safety Report 9300738 (Version 2)
Quarter: 2013Q2

REPORT INFORMATION
  Report Type: Spontaneous
  Country: JP (occurrence: JP)
  Receive Date: 20130521
  Receipt Date: 20130529
  Transmission Date: 20140414
  Serious: Yes (Hospitalization, Other)
  Sender: FDA-Public Use
  Company Number: JP-PFIZER INC-2013154507

PATIENT
  Age: 85 Year
  Sex: Female

DRUGS (11)
  1. LYRICA [Suspect]
     Indication: PAIN IN EXTREMITY
     Dosage: 25 MG, 2X/DAY
     Route: 048
     Dates: start: 20130409, end: 20130506
  2. LYRICA [Suspect]
     Indication: HYPOAESTHESIA
     Dosage: 50 MG, 2X/DAY
     Route: 048
     Dates: start: 20130507
  3. SOLETON [Concomitant]
     Dosage: UNK
     Route: 048
  4. MUCOSTA [Concomitant]
     Dosage: UNK
     Route: 048
  5. UBRETID [Concomitant]
     Dosage: UNK
     Route: 048
  6. DORNER [Concomitant]
     Dosage: UNK
     Route: 048
  7. JUVELA N [Concomitant]
     Dosage: UNK
     Route: 048
  8. SELBEX [Concomitant]
     Dosage: UNK
     Route: 048
  9. EDIROL [Concomitant]
     Dosage: UNK
     Route: 048
  10. ALENDRONATE SODIUM [Concomitant]
     Dosage: UNK
     Route: 048
  11. MECOBALAMIN [Concomitant]
     Dosage: UNK
     Route: 048

REACTIONS (6)
  - Pelvic fracture [Not Recovered/Not Resolved]
  - Fall [Not Recovered/Not Resolved]
  - Blood creatine phosphokinase increased [Recovered/Resolved]
  - Blood urine present [Recovered/Resolved]
  - Gait disturbance [Not Recovered/Not Resolved]
  - Pyrexia [Recovered/Resolved]
